FAERS Safety Report 6758031-2 (Version None)
Quarter: 2010Q2

REPORT INFORMATION
  Report Type: 
  Country: None (occurrence: None)
  Receive Date: 20100607
  Receipt Date: 20100602
  Transmission Date: 20101027
  Serious: Yes (Death)
  Sender: FDA-Public Use
  Company Number: UA-ASTRAZENECA-2010SE23375

PATIENT
  Age: 29 Year
  Sex: Female

DRUGS (4)
  1. MARCAINE [Suspect]
     Indication: SPINAL ANAESTHESIA
     Route: 037
     Dates: start: 20100421, end: 20100421
  2. ATROPINE SULPHATE [Concomitant]
     Indication: PREMEDICATION
     Route: 042
     Dates: start: 20100421
  3. DIMEDROL [Concomitant]
     Indication: PREMEDICATION
     Route: 042
     Dates: start: 20100421
  4. SODIUM CHLORIDE [Concomitant]
     Indication: PREMEDICATION
     Route: 042
     Dates: start: 20100421

REACTIONS (2)
  - CARDIAC FAILURE [None]
  - RESPIRATORY FAILURE [None]
